FAERS Safety Report 10673432 (Version 1)
Quarter: 2014Q4

REPORT INFORMATION
  Report Type: Report from Study
  Country: US (occurrence: US)
  Receive Date: 20141224
  Receipt Date: 20141224
  Transmission Date: 20150529
  Serious: Yes (Disabling)
  Sender: FDA-Public Use
  Company Number: US-AMGEN-USASL2014098812

PATIENT
  Age: 46 Year
  Sex: Female
  Weight: 47.62 kg

DRUGS (1)
  1. ENBREL [Suspect]
     Active Substance: ETANERCEPT
     Indication: RHEUMATOID ARTHRITIS
     Dosage: 50 MG, Q2WK
     Route: 058
     Dates: end: 20141210

REACTIONS (3)
  - Erythema [Unknown]
  - Urticaria [Recovering/Resolving]
  - Pain [Unknown]
